FAERS Safety Report 6583006-6 (Version None)
Quarter: 2010Q1

REPORT INFORMATION
  Report Type: 
  Country: None (occurrence: None)
  Receive Date: 20100212
  Receipt Date: 20100212
  Transmission Date: 20100710
  Serious: Yes (Hospitalization)
  Sender: FDA-Public Use
  Company Number: None

PATIENT
  Age: 73 Year
  Sex: Male
  Weight: 43.0917 kg

DRUGS (2)
  1. IBUPROFEN [Suspect]
     Indication: OSTEOARTHRITIS
     Dosage: 600 MG TID
     Dates: start: 20090514, end: 20100118
  2. LISINOPRIL [Suspect]
     Indication: HYPERTENSION
     Dosage: 10 MG EVERY DAY PO
     Route: 048
     Dates: start: 20080825

REACTIONS (7)
  - FLUID INTAKE REDUCED [None]
  - HYPERNATRAEMIA [None]
  - HYPOPHAGIA [None]
  - HYPOTENSION [None]
  - HYPOVOLAEMIA [None]
  - METABOLIC ACIDOSIS [None]
  - RENAL FAILURE ACUTE [None]
